FAERS Safety Report 4270559-6 (Version None)
Quarter: 2004Q1

REPORT INFORMATION
  Report Type: 
  Country: None (occurrence: None)
  Receive Date: 20040113
  Receipt Date: 20040113
  Transmission Date: 20041129
  Serious: Yes (Hospitalization)
  Sender: FDA-Public Use
  Company Number: None

PATIENT
  Age: 80 Year
  Sex: Female
  Weight: 40.8237 kg

DRUGS (16)
  1. CARBOPLATIN [Suspect]
     Indication: LUNG NEOPLASM MALIGNANT
     Dosage: 430 MG IV
     Route: 042
     Dates: start: 20031030
  2. CARBOPLATIN [Suspect]
     Indication: LUNG NEOPLASM MALIGNANT
     Dosage: 430 MG IV
     Route: 042
     Dates: start: 20031120
  3. GEMCITABINE [Suspect]
     Indication: LUNG NEOPLASM MALIGNANT
     Dosage: 1400 MG IV
     Route: 042
     Dates: start: 20031030
  4. GEMCITABINE [Suspect]
     Indication: LUNG NEOPLASM MALIGNANT
     Dosage: 1400 MG IV
     Route: 042
     Dates: start: 20031120
  5. GEMCITABINE [Suspect]
     Indication: LUNG NEOPLASM MALIGNANT
     Dosage: 1400 MG IV
     Route: 042
     Dates: start: 20031126
  6. DECADRON [Concomitant]
  7. TOPROL-XL [Concomitant]
  8. ISOSORBIDE [Concomitant]
  9. CODEINE [Concomitant]
  10. LASIX [Concomitant]
  11. PREMARIN [Concomitant]
  12. ZOCOR [Concomitant]
  13. LOTENSIN [Concomitant]
  14. PROTONIX [Concomitant]
  15. ASPIRIN [Concomitant]
  16. ALBUTEROL [Concomitant]

REACTIONS (7)
  - CONDITION AGGRAVATED [None]
  - DEHYDRATION [None]
  - DYSPHAGIA [None]
  - OESOPHAGEAL CANDIDIASIS [None]
  - ORAL CANDIDIASIS [None]
  - PEPTIC ULCER [None]
  - WEIGHT DECREASED [None]
